FAERS Safety Report 21643796 (Version 2)
Quarter: 2022Q4

REPORT INFORMATION
  Report Type: Spontaneous
  Country: US (occurrence: US)
  Receive Date: 20221125
  Receipt Date: 20221129
  Transmission Date: 20230113
  Serious: Yes (Life-Threatening, Hospitalization, Other)
  Sender: FDA-Public Use
  Company Number: US-MLMSERVICE-20221115-3914264-1

PATIENT
  Age: 26 Year
  Sex: Male

DRUGS (4)
  1. METHOTREXATE SODIUM [Suspect]
     Active Substance: METHOTREXATE SODIUM
     Indication: B precursor type acute leukaemia
     Dosage: 15 MG, WEEKLY, 7 DOSES
     Route: 037
  2. METHOTREXATE SODIUM [Suspect]
     Active Substance: METHOTREXATE SODIUM
     Dosage: 12 MG, WEEKLY
     Route: 037
  3. BLINATUMOMAB [Suspect]
     Active Substance: BLINATUMOMAB
     Indication: B precursor type acute leukaemia
     Dosage: 28 UG
  4. PONATINIB [Concomitant]
     Active Substance: PONATINIB
     Indication: B precursor type acute leukaemia
     Dosage: UNK

REACTIONS (6)
  - Neurotoxicity [Unknown]
  - Altered state of consciousness [Recovered/Resolved]
  - Language disorder [Recovering/Resolving]
  - Generalised tonic-clonic seizure [Recovered/Resolved]
  - Muscle strength abnormal [Recovering/Resolving]
  - Depressed level of consciousness [Recovering/Resolving]
